FAERS Safety Report 8049039-8 (Version None)
Quarter: 2012Q1

REPORT INFORMATION
  Report Type: 
  Country: None (occurrence: None)
  Receive Date: 20120117
  Receipt Date: 20120109
  Transmission Date: 20120608
  Serious: Yes (Other)
  Sender: FDA-Public Use
  Company Number: US-UCBSA-049151

PATIENT
  Age: 77 Year
  Sex: Female
  Weight: 88.5 kg

DRUGS (8)
  1. DIPHEN [Concomitant]
     Route: 048
  2. LEXAPRO [Concomitant]
     Route: 048
  3. METROPROLO ER [Concomitant]
     Indication: CARDIAC DISORDER
     Route: 048
  4. CIMZIA [Suspect]
     Dosage: UNKNOWN DOSE
     Route: 058
     Dates: start: 20090522
  5. HYDROCHLORTHIAZIDE [Concomitant]
  6. MERCAPTOPURINE [Concomitant]
     Route: 048
  7. CIMZIA [Suspect]
     Indication: CROHN'S DISEASE
     Route: 058
     Dates: end: 20120109
  8. SIMVASTATIN [Concomitant]
     Route: 048

REACTIONS (2)
  - THROMBOSIS [None]
  - RESPIRATORY TRACT INFECTION [None]
